FAERS Safety Report 5082527-5 (Version None)
Quarter: 2006Q3

REPORT INFORMATION
  Report Type: 
  Country: None (occurrence: None)
  Receive Date: 20060817
  Receipt Date: 20060220
  Transmission Date: 20061208
  Serious: Yes (Hospitalization, Disabling)
  Sender: FDA-Public Use
  Company Number: DE-ROCHE-437811

PATIENT
  Age: 43 Year
  Sex: Male

DRUGS (2)
  1. PEGASYS [Suspect]
     Indication: HEPATITIS C
     Route: 065
     Dates: start: 20050121
  2. COPEGUS [Suspect]
     Indication: HEPATITIS C
     Route: 065
     Dates: start: 20050121

REACTIONS (20)
  - ATROPHY [None]
  - DEPRESSION [None]
  - DISEASE PROGRESSION [None]
  - DIZZINESS [None]
  - DRUG INEFFECTIVE [None]
  - DYSPNOEA [None]
  - ERECTILE DYSFUNCTION [None]
  - INSOMNIA [None]
  - MOBILITY DECREASED [None]
  - MONONEURITIS [None]
  - MUSCULOSKELETAL STIFFNESS [None]
  - PAIN IN EXTREMITY [None]
  - PANIC ATTACK [None]
  - POLYNEUROPATHY [None]
  - REFUSAL OF EXAMINATION [None]
  - SLEEP DISORDER [None]
  - TACHYCARDIA [None]
  - TUNNEL VISION [None]
  - WEIGHT DECREASED [None]
  - WEIGHT INCREASED [None]
